FAERS Safety Report 10561270 (Version 1)
Quarter: 2014Q4

REPORT INFORMATION
  Report Type: Spontaneous
  Country: IE (occurrence: IE)
  Receive Date: 20141103
  Receipt Date: 20141103
  Transmission Date: 20150529
  Serious: Yes (Other)
  Sender: FDA-Public Use
  Company Number: IE-MYLANLABS-2014M1009295

PATIENT

DRUGS (1)
  1. WARFARIN [Suspect]
     Active Substance: WARFARIN
     Indication: DEEP VEIN THROMBOSIS
     Route: 065

REACTIONS (5)
  - Calciphylaxis [Unknown]
  - Blood parathyroid hormone increased [None]
  - Cellulitis [Unknown]
  - Skin necrosis [None]
  - Blood phosphorus increased [None]
